FAERS Safety Report 23867316 (Version 1)
Quarter: 2024Q2

REPORT INFORMATION
  Report Type: Report from Study
  Country: GB (occurrence: GB)
  Receive Date: 20240517
  Receipt Date: 20240517
  Transmission Date: 20240716
  Serious: Yes (Other)
  Sender: FDA-Public Use
  Company Number: GB-SANDOZ-SDZ2024GB040628

PATIENT
  Sex: Female

DRUGS (2)
  1. HYRIMOZ [Suspect]
     Active Substance: ADALIMUMAB-ADAZ
     Indication: Rheumatoid arthritis
     Dosage: 40 MG, Q2W
     Route: 058
  2. HYRIMOZ [Suspect]
     Active Substance: ADALIMUMAB-ADAZ
     Dosage: UNK, 40MG/0.4ML
     Route: 065

REACTIONS (3)
  - Cataract [Not Recovered/Not Resolved]
  - Abscess [Not Recovered/Not Resolved]
  - Dermal cyst [Not Recovered/Not Resolved]
